FAERS Safety Report 9086496 (Version 1)
Quarter: 2013Q1

REPORT INFORMATION
  Report Type: Report from Study
  Country: US (occurrence: US)
  Receive Date: 20130131
  Receipt Date: 20130131
  Transmission Date: 20140127
  Serious: Yes (Other)
  Sender: FDA-Public Use
  Company Number: US-ABBOTT-12P-163-0989231-00

PATIENT
  Age: 51 Year
  Sex: Female

DRUGS (9)
  1. HUMIRA [Suspect]
     Indication: CROHN^S DISEASE
     Dates: start: 200810, end: 200911
  2. HUMIRA [Suspect]
     Dates: start: 201111, end: 201202
  3. HUMIRA [Suspect]
     Dates: start: 201203
  4. VITAMIN B 12 INJECTION [Concomitant]
     Indication: PRODUCT USED FOR UNKNOWN INDICATION
     Route: 050
  5. VITAMIN B 12 INJECTION [Concomitant]
     Dates: start: 20110810, end: 201202
  6. VITAMIN B 12 INJECTION [Concomitant]
     Dates: start: 201203
  7. MULTIVITAMIN [Concomitant]
     Indication: PRODUCT USED FOR UNKNOWN INDICATION
  8. VITANIN D [Concomitant]
     Indication: PRODUCT USED FOR UNKNOWN INDICATION
  9. VITAMIN B COMPLEX [Concomitant]
     Indication: PRODUCT USED FOR UNKNOWN INDICATION

REACTIONS (3)
  - Carpal tunnel decompression [Recovered/Resolved]
  - Intestinal resection [Recovered/Resolved]
  - Bladder operation [Recovered/Resolved]
